FAERS Safety Report 19052956 (Version 8)
Quarter: 2021Q3

REPORT INFORMATION
  Report Type: Other
  Country: ZA (occurrence: ZA)
  Receive Date: 20210324
  Receipt Date: 20210825
  Transmission Date: 20211014
  Serious: Yes (Hospitalization, Other)
  Sender: FDA-Public Use
  Company Number: ZA-ROCHE-2793696

PATIENT
  Age: 5 Year
  Sex: Male

DRUGS (3)
  1. ACTEMRA [Suspect]
     Active Substance: TOCILIZUMAB
     Dosage: SOMETIMES USES ONLY EVERY 3 WEEKS
     Route: 058
     Dates: start: 20210112
  2. MABTHERA [Concomitant]
     Active Substance: RITUXIMAB
     Indication: JUVENILE IDIOPATHIC ARTHRITIS
     Dosage: NOT SURE HOW PATIENT USED THE MABTHERA
     Route: 041
  3. ACTEMRA [Suspect]
     Active Substance: TOCILIZUMAB
     Indication: ENCEPHALITIS AUTOIMMUNE
     Route: 058

REACTIONS (4)
  - Immunosuppression [Unknown]
  - Pseudomonas infection [Unknown]
  - White blood cell count decreased [Unknown]
  - Off label use [Unknown]

NARRATIVE: CASE EVENT DATE: 20210311
